FAERS Safety Report 6962942-2 (Version None)
Quarter: 2010Q3

REPORT INFORMATION
  Report Type: 
  Country: None (occurrence: None)
  Receive Date: 20100823
  Receipt Date: 20100702
  Transmission Date: 20110219
  Serious: Yes (Other)
  Sender: FDA-Public Use
  Company Number: 015094

PATIENT
  Sex: Female
  Weight: 61.6 kg

DRUGS (8)
  1. CIMZIA [Suspect]
     Indication: CROHN'S DISEASE
     Dosage: 400 MG 1X/2 WEEKS SUBCUTANEOUS
     Route: 058
     Dates: start: 20100101
  2. APO-PREDNISONE [Concomitant]
  3. PREVACID [Concomitant]
  4. CARAFATE [Concomitant]
  5. BACTRIM [Concomitant]
  6. XIFAXAN [Concomitant]
  7. CIPROFLOXACIN [Concomitant]
  8. FOLIC ACID [Concomitant]

REACTIONS (2)
  - ABDOMINAL PAIN [None]
  - FATIGUE [None]
